FAERS Safety Report 20329311 (Version 1)
Quarter: 2022Q1

REPORT INFORMATION
  Report Type: Spontaneous
  Country: CA (occurrence: CA)
  Receive Date: 20220112
  Receipt Date: 20220112
  Transmission Date: 20220423
  Serious: Yes (Other)
  Sender: FDA-Public Use
  Company Number: CA-TEVA-2022-CA-1997626

PATIENT
  Sex: Female

DRUGS (6)
  1. NAPROXEN [Suspect]
     Active Substance: NAPROXEN
     Indication: Tendonitis
     Route: 065
  2. NAPROXEN [Suspect]
     Active Substance: NAPROXEN
     Route: 065
  3. PENTASA [Suspect]
     Active Substance: MESALAMINE
     Indication: Colitis ulcerative
     Dosage: 4 GRAM DAILY;
     Route: 065
  4. PENTASA [Suspect]
     Active Substance: MESALAMINE
     Dosage: 1 GRAM DAILY;
     Route: 054
  5. PENTASA [Suspect]
     Active Substance: MESALAMINE
     Dosage: 1 GRAM DAILY;
     Route: 065
  6. DEXILANT [Concomitant]
     Active Substance: DEXLANSOPRAZOLE

REACTIONS (6)
  - Colitis ulcerative [Unknown]
  - Nocturia [Unknown]
  - Photosensitivity reaction [Unknown]
  - Drug ineffective [Unknown]
  - Off label use [Unknown]
  - Treatment noncompliance [Unknown]
